FAERS Safety Report 6370597-3 (Version None)
Quarter: 2009Q3

REPORT INFORMATION
  Report Type: 
  Country: None (occurrence: None)
  Receive Date: 20090923
  Receipt Date: 20090921
  Transmission Date: 20100115
  Serious: Yes (Other)
  Sender: FDA-Public Use
  Company Number: D0062945A

PATIENT
  Age: 30 Year
  Sex: Male
  Weight: 120 kg

DRUGS (1)
  1. AUGMENTIN [Suspect]
     Indication: OTITIS MEDIA
     Dosage: 1000MG PER DAY
     Route: 048
     Dates: start: 20090721, end: 20090724

REACTIONS (1)
  - PANCREATITIS [None]
